FAERS Safety Report 8389414-5 (Version None)
Quarter: 2012Q2

REPORT INFORMATION
  Report Type: 
  Country: None (occurrence: None)
  Receive Date: 20120528
  Receipt Date: 20120519
  Transmission Date: 20120825
  Serious: Yes (Other)
  Sender: FDA-Public Use
  Company Number: US-RB-040088-12

PATIENT
  Age: 49 Year
  Sex: Female

DRUGS (2)
  1. ZITHROMAX [Concomitant]
     Indication: BRONCHITIS
  2. DELSYM [Suspect]
     Indication: PRODUCT USED FOR UNKNOWN INDICATION
     Route: 048
     Dates: start: 20120517

REACTIONS (7)
  - DYSPNOEA [None]
  - TREMOR [None]
  - ADVERSE REACTION [None]
  - PALPITATIONS [None]
  - THINKING ABNORMAL [None]
  - GAIT DISTURBANCE [None]
  - HALLUCINATION [None]
